FAERS Safety Report 6125134-5 (Version None)
Quarter: 2009Q1

REPORT INFORMATION
  Report Type: 
  Country: None (occurrence: None)
  Receive Date: 20090317
  Receipt Date: 20090311
  Transmission Date: 20090719
  Serious: Yes (Death)
  Sender: FDA-Public Use
  Company Number: AE-309-083

PATIENT
  Age: 80 Year
  Sex: Female

DRUGS (1)
  1. LIDODERM [Suspect]
     Indication: CANCER PAIN

REACTIONS (3)
  - BONE NEOPLASM MALIGNANT [None]
  - CARDIAC FAILURE [None]
  - RESPIRATORY FAILURE [None]
